FAERS Safety Report 8072276-3 (Version None)
Quarter: 2012Q1

REPORT INFORMATION
  Report Type: 
  Country: None (occurrence: None)
  Receive Date: 20120126
  Receipt Date: 20120119
  Transmission Date: 20120608
  Serious: No
  Sender: FDA-Public Use
  Company Number: US-PFIZER INC-2012016566

PATIENT

DRUGS (1)
  1. DETROL LA [Suspect]
     Dosage: 4 MG, UNK

REACTIONS (1)
  - BLADDER DISORDER [None]
